FAERS Safety Report 6883026-8 (Version None)
Quarter: 2010Q3

REPORT INFORMATION
  Report Type: 
  Country: None (occurrence: None)
  Receive Date: 20100729
  Receipt Date: 20100720
  Transmission Date: 20110219
  Serious: Yes (Life-Threatening, Hospitalization, Other)
  Sender: FDA-Public Use
  Company Number: GB-PFIZER INC-2010084968

PATIENT
  Age: 77 Year
  Sex: Female
  Weight: 42.1 kg

DRUGS (3)
  1. SUTENT [Suspect]
     Indication: GASTROINTESTINAL STROMAL TUMOUR
     Dosage: 50 MG, UNK
     Route: 048
     Dates: start: 20100526, end: 20100607
  2. WARFARIN [Concomitant]
     Dosage: 5 MG, 1X/DAY
     Route: 048
     Dates: start: 20080301, end: 20100607
  3. PENICILLIN V [Concomitant]
     Indication: SPLENECTOMY
     Dosage: 250 MG, UNK
     Route: 048
     Dates: start: 20080301

REACTIONS (5)
  - CEREBRAL HAEMORRHAGE [None]
  - HYPERTENSION [None]
  - MALAISE [None]
  - SYNCOPE [None]
  - VISUAL IMPAIRMENT [None]
